FAERS Safety Report 5508581-1 (Version None)
Quarter: 2007Q4

REPORT INFORMATION
  Report Type: 
  Country: None (occurrence: None)
  Receive Date: 20071031
  Receipt Date: 20070720
  Transmission Date: 20080405
  Serious: No
  Sender: FDA-Public Use
  Company Number: 2007PV033169

PATIENT
  Age: 32 Year
  Sex: Female
  Weight: 85.7298 kg

DRUGS (4)
  1. SYMLIN [Suspect]
     Indication: TYPE 1 DIABETES MELLITUS
     Dosage: 60 MCG;TID; SC; 45 MCG; TID; SC
     Route: 058
     Dates: start: 20060301, end: 20060401
  2. SYMLIN [Suspect]
     Indication: TYPE 1 DIABETES MELLITUS
     Dosage: 60 MCG;TID; SC; 45 MCG; TID; SC
     Route: 058
     Dates: start: 20060401, end: 20060801
  3. HUMALOG [Concomitant]
  4. LANTUS [Concomitant]

REACTIONS (1)
  - NAUSEA [None]
